FAERS Safety Report 12886223 (Version 1)
Quarter: 2016Q4

REPORT INFORMATION
  Report Type: Report from Study
  Country: US (occurrence: US)
  Receive Date: 20161026
  Receipt Date: 20161026
  Transmission Date: 20170207
  Serious: Yes (Other)
  Sender: FDA-Public Use
  Company Number: US-BAYER-2016-166318

PATIENT
  Sex: Male

DRUGS (6)
  1. CLONIDINE. [Concomitant]
     Active Substance: CLONIDINE
  2. LOSARTAN POTASSIUM W/HYDROCHLOROTHIAZIDE [Concomitant]
     Active Substance: HYDROCHLOROTHIAZIDE\LOSARTAN POTASSIUM
  3. METOPROLOL TARTRATE. [Concomitant]
     Active Substance: METOPROLOL TARTRATE
  4. ZOFRAN [Concomitant]
     Active Substance: ONDANSETRON HYDROCHLORIDE
  5. STIVARGA [Suspect]
     Active Substance: REGORAFENIB
     Indication: COLON CANCER
     Dosage: DAILY DOSE 160 MG (DAILY FOR 21 DAYS ON 7 DAYS OFF) TAKE WITH FOOD (A LOW FAT BREAKFAST)
     Route: 048
  6. PANTOPRAZOLE SODIUM. [Concomitant]
     Active Substance: PANTOPRAZOLE SODIUM

REACTIONS (13)
  - Headache [None]
  - Cough [None]
  - Renal failure [None]
  - Haematemesis [None]
  - Hypertension [None]
  - Sepsis [None]
  - Dry mouth [None]
  - Muscle spasms [None]
  - Platelet count decreased [None]
  - Rectal haemorrhage [None]
  - Chills [None]
  - Insomnia [None]
  - Restlessness [None]
